FAERS Safety Report 9330592 (Version 3)
Quarter: 2013Q3

REPORT INFORMATION
  Report Type: Report from Study
  Country: US (occurrence: US)
  Receive Date: 20130605
  Receipt Date: 20130813
  Transmission Date: 20140515
  Serious: Yes (Death, Hospitalization)
  Sender: FDA-Public Use
  Company Number: PHEH2013US012145

PATIENT
  Sex: Female

DRUGS (1)
  1. TOBI [Suspect]
     Dosage: 300 MG, BID (28 DAYS ON, 28 DAYS OFF)
     Dates: start: 201306

REACTIONS (3)
  - Cystic fibrosis [Fatal]
  - Rash [Unknown]
  - Pyrexia [Unknown]
